FAERS Safety Report 20119570 (Version 5)
Quarter: 2022Q1

REPORT INFORMATION
  Report Type: Report from Study
  Country: MX (occurrence: MX)
  Receive Date: 20211126
  Receipt Date: 20220202
  Transmission Date: 20220423
  Serious: Yes (Other)
  Sender: FDA-Public Use
  Company Number: MX-NOVARTISPH-NVSC2021MX266621

PATIENT
  Age: 33 Year
  Sex: Male
  Weight: 72 kg

DRUGS (13)
  1. ELTROMBOPAG OLAMINE [Suspect]
     Active Substance: ELTROMBOPAG OLAMINE
     Indication: Platelet count decreased
     Dosage: 1 DF, QD, (1 DF OF 25 MG)
     Route: 048
     Dates: start: 20201214
  2. ELTROMBOPAG OLAMINE [Suspect]
     Active Substance: ELTROMBOPAG OLAMINE
     Dosage: 25 MG, QW (1 DF)
     Route: 065
     Dates: start: 20201214
  3. ELTROMBOPAG OLAMINE [Suspect]
     Active Substance: ELTROMBOPAG OLAMINE
     Dosage: 1 DF, QD, (1 DF OF 25 MG)
     Route: 048
     Dates: start: 20201215, end: 20211004
  4. ELTROMBOPAG OLAMINE [Suspect]
     Active Substance: ELTROMBOPAG OLAMINE
     Dosage: 1 DF, QW, (1 DF OF 25 MG)
     Route: 048
     Dates: start: 20211004
  5. ELTROMBOPAG OLAMINE [Suspect]
     Active Substance: ELTROMBOPAG OLAMINE
     Dosage: 1 DOSAGE FORM, QW
     Route: 065
  6. ELTROMBOPAG OLAMINE [Suspect]
     Active Substance: ELTROMBOPAG OLAMINE
     Dosage: 1 DOSAGE FORM, QW
     Route: 065
     Dates: start: 202110
  7. ELTROMBOPAG OLAMINE [Suspect]
     Active Substance: ELTROMBOPAG OLAMINE
     Dosage: 1 DOSAGE FORM, QW (1 OF 25 MG)
     Route: 048
  8. CYCLOSPORINE [Suspect]
     Active Substance: CYCLOSPORINE
     Indication: Platelet count decreased
     Dosage: 0.5 DF, QOD, 0.5 DF OF 100 MG 100 ML (SOLUTION)
     Route: 065
     Dates: start: 202003
  9. CYCLOSPORINE [Suspect]
     Active Substance: CYCLOSPORINE
     Indication: Platelet disorder
     Dosage: 0.5 DOSAGE FORM, QD (100 MG 50 ML)
     Route: 048
     Dates: start: 202104, end: 20211004
  10. CYCLOSPORINE [Suspect]
     Active Substance: CYCLOSPORINE
     Dosage: 0.5 ML, QD (100 MG/ 100 ML)
     Route: 048
     Dates: start: 202103, end: 20211004
  11. CYCLOSPORINE [Suspect]
     Active Substance: CYCLOSPORINE
     Dosage: 0.5 ML (EVERY 3RDDAY)
     Route: 048
     Dates: start: 20211004
  12. CYCLOSPORINE [Suspect]
     Active Substance: CYCLOSPORINE
     Dosage: 100 MG
     Route: 065
  13. OMEPRAZOLE [Concomitant]
     Active Substance: OMEPRAZOLE
     Indication: Gastric disorder
     Dosage: 1 DOSAGE FORM, QD
     Route: 048
     Dates: start: 202012

REACTIONS (13)
  - Blood triglycerides increased [Not Recovered/Not Resolved]
  - Aplastic anaemia [Unknown]
  - Swelling [Not Recovered/Not Resolved]
  - Restlessness [Unknown]
  - Inflammation [Recovered/Resolved]
  - Platelet count increased [Recovered/Resolved]
  - Gastritis [Recovering/Resolving]
  - Abdominal pain upper [Recovering/Resolving]
  - Fatigue [Not Recovered/Not Resolved]
  - Incorrect dose administered [Not Recovered/Not Resolved]
  - Inappropriate schedule of product administration [Unknown]
  - Product use in unapproved indication [Not Recovered/Not Resolved]
  - Headache [Not Recovered/Not Resolved]

NARRATIVE: CASE EVENT DATE: 20201201
